FAERS Safety Report 8132038-5 (Version None)
Quarter: 2012Q1

REPORT INFORMATION
  Report Type: 
  Country: None (occurrence: None)
  Receive Date: 20120103
  Receipt Date: 20110921
  Transmission Date: 20120608
  Serious: No
  Sender: FDA-Public Use
  Company Number: AE-2011-001713

PATIENT
  Sex: Male
  Weight: 86.1834 kg

DRUGS (4)
  1. LUNESTA [Concomitant]
  2. RIBAVIRIN [Concomitant]
  3. PEGASYS [Concomitant]
  4. INCIVEK [Suspect]
     Dosage: 2250 MG (750 MG,3 IN 1 D)
     Dates: start: 20110823, end: 20110919

REACTIONS (8)
  - DECREASED APPETITE [None]
  - WEIGHT DECREASED [None]
  - CONSTIPATION [None]
  - DYSGEUSIA [None]
  - VOMITING [None]
  - DIARRHOEA [None]
  - FATIGUE [None]
  - ANAEMIA [None]
